APPROVED DRUG PRODUCT: ACETAMINOPHEN AND CODEINE PHOSPHATE
Active Ingredient: ACETAMINOPHEN; CODEINE PHOSPHATE
Strength: 300MG;60MG
Dosage Form/Route: TABLET;ORAL
Application: A040223 | Product #003
Applicant: DURAMED PHARMACEUTICALS INC SUB BARR LABORATORIES INC
Approved: Nov 18, 1997 | RLD: No | RS: No | Type: DISCN